FAERS Safety Report 9292144 (Version 1)
Quarter: 2013Q2

REPORT INFORMATION
  Report Type: Report from Study
  Country: CA (occurrence: CA)
  Receive Date: 20130516
  Receipt Date: 20130516
  Transmission Date: 20140414
  Serious: Yes (Other)
  Sender: FDA-Public Use
  Company Number: CA-JNJFOC-20130502005

PATIENT
  Sex: 0

DRUGS (1)
  1. REMICADE [Suspect]
     Indication: FOETAL EXPOSURE DURING PREGNANCY
     Route: 064

REACTIONS (1)
  - Large for dates baby [Unknown]
